FAERS Safety Report 5215741-6 (Version None)
Quarter: 2007Q1

REPORT INFORMATION
  Report Type: 
  Country: None (occurrence: None)
  Receive Date: 20070123
  Receipt Date: 20070111
  Transmission Date: 20070707
  Serious: No
  Sender: FDA-Public Use
  Company Number: US-ELI_LILLY_AND_COMPANY-US200612004670

PATIENT
  Age: 80 Year
  Sex: Female

DRUGS (5)
  1. FORTEO [Suspect]
     Indication: OSTEOPOROSIS
  2. XALATAN                                 /SWE/ [Concomitant]
     Dosage: 5 GTT, EACH EVENING
     Route: 001
  3. PROPRANOLOL [Concomitant]
     Indication: PAIN
  4. TYLENOL                                 /USA/ [Concomitant]
     Indication: PAIN
  5. RESTORIL [Concomitant]
     Indication: INSOMNIA

REACTIONS (9)
  - COUGH [None]
  - DRY MOUTH [None]
  - DYSGEUSIA [None]
  - MALAISE [None]
  - MEMORY IMPAIRMENT [None]
  - PAIN [None]
  - PRURITUS [None]
  - RASH [None]
  - VISUAL DISTURBANCE [None]
